FAERS Safety Report 19842015 (Version 5)
Quarter: 2024Q1

REPORT INFORMATION
  Report Type: Spontaneous
  Country: ZA (occurrence: ZA)
  Receive Date: 20210916
  Receipt Date: 20240125
  Transmission Date: 20240410
  Serious: Yes (Other)
  Sender: FDA-Public Use
  Company Number: ZA-PFIZER INC-202101082684

PATIENT
  Age: 22 Year
  Sex: Female

DRUGS (8)
  1. METHOTREXATE SODIUM [Suspect]
     Active Substance: METHOTREXATE SODIUM
     Indication: Rheumatoid arthritis
     Dosage: 15 MG, WEEKLY
     Dates: start: 201602
  2. METHOTREXATE SODIUM [Suspect]
     Active Substance: METHOTREXATE SODIUM
     Indication: Juvenile idiopathic arthritis
  3. SULFASALAZINE [Suspect]
     Active Substance: SULFASALAZINE
     Indication: Rheumatoid arthritis
     Dosage: 2 G, DAILY
     Dates: start: 202003, end: 202005
  4. SULFASALAZINE [Suspect]
     Active Substance: SULFASALAZINE
     Indication: Juvenile idiopathic arthritis
  5. CHLOROQUINE [Suspect]
     Active Substance: CHLOROQUINE
     Indication: Rheumatoid arthritis
     Dosage: 200 MG, DAILY
     Dates: start: 202003
  6. CHLOROQUINE [Suspect]
     Active Substance: CHLOROQUINE
     Indication: Juvenile idiopathic arthritis
  7. PREDNISONE [Concomitant]
     Active Substance: PREDNISONE
     Dosage: 5 MG, DAILY
     Dates: start: 201906
  8. VIMOVO [Concomitant]
     Active Substance: ESOMEPRAZOLE MAGNESIUM\NAPROXEN
     Dosage: 500 MG, 2X/DAY
     Dates: start: 202003

REACTIONS (7)
  - Alanine aminotransferase increased [Unknown]
  - Aspartate aminotransferase increased [Unknown]
  - Blood creatinine increased [Unknown]
  - Treatment failure [Unknown]
  - Haemoglobin decreased [Unknown]
  - White blood cell count decreased [Unknown]
  - Joint swelling [Unknown]

NARRATIVE: CASE EVENT DATE: 20210630
